FAERS Safety Report 6564663-7 (Version None)
Quarter: 2010Q1

REPORT INFORMATION
  Report Type: 
  Country: None (occurrence: None)
  Receive Date: 20100201
  Receipt Date: 20100114
  Transmission Date: 20100710
  Serious: Yes (Hospitalization)
  Sender: FDA-Public Use
  Company Number: JP-SANOFI-AVENTIS-F01200900166

PATIENT
  Age: 84 Year
  Sex: Male
  Weight: 54 kg

DRUGS (12)
  1. CLOPIDOGREL BISULFATE [Suspect]
     Indication: ANGINA UNSTABLE
     Dosage: DOSE TEXT: STARTING DOSE
     Route: 048
     Dates: start: 20081129, end: 20081129
  2. CLOPIDOGREL BISULFATE [Suspect]
     Indication: ACUTE CORONARY SYNDROME
     Dosage: DOSE TEXT: STARTING DOSE
     Route: 048
     Dates: start: 20081129, end: 20081129
  3. CLOPIDOGREL BISULFATE [Suspect]
     Dosage: DOSE TEXT: MAINTENANCE DOSE
     Route: 048
     Dates: start: 20081130
  4. CLOPIDOGREL BISULFATE [Suspect]
     Dosage: DOSE TEXT: MAINTENANCE DOSE
     Route: 048
     Dates: start: 20081130
  5. ASPIRIN [Concomitant]
     Indication: ANGINA UNSTABLE
     Route: 048
     Dates: start: 20081129
  6. HEPARIN [Concomitant]
     Indication: ANGINA UNSTABLE
     Route: 042
     Dates: start: 20081129, end: 20081129
  7. NITOROL [Concomitant]
     Indication: ANGINA UNSTABLE
     Route: 042
     Dates: start: 20081129, end: 20081129
  8. LASIX [Concomitant]
     Indication: CARDIAC FAILURE
     Route: 048
     Dates: start: 20081129
  9. STARSIS [Concomitant]
     Indication: DIABETES MELLITUS
     Route: 048
  10. ANGINAL [Concomitant]
     Indication: ANGINA PECTORIS
     Route: 048
  11. EPADEL [Concomitant]
     Route: 048
  12. ALESION [Concomitant]
     Indication: RASH
     Route: 048

REACTIONS (1)
  - PYELONEPHRITIS ACUTE [None]
